FAERS Safety Report 8535916-8 (Version None)
Quarter: 2012Q3

REPORT INFORMATION
  Report Type: 
  Country: None (occurrence: None)
  Receive Date: 20120725
  Receipt Date: 20120719
  Transmission Date: 20120928
  Serious: Yes (Other)
  Sender: FDA-Public Use
  Company Number: PHHY2012BR027608

PATIENT
  Sex: Female
  Weight: 72 kg

DRUGS (10)
  1. OLCADIL [Concomitant]
     Indication: INSOMNIA
     Dosage: 1 DF,DAILY
     Route: 048
  2. METFORMIN HYDROCHLORIDE [Concomitant]
     Indication: DIABETES MELLITUS
     Dosage: 1 DF, DAILY
     Route: 048
  3. BETNOVATE [Concomitant]
     Indication: PSORIASIS
  4. TRILEPTAL [Suspect]
     Dosage: 600 MG, BID
     Route: 048
     Dates: start: 20120319
  5. OLCADIL [Concomitant]
     Indication: DEPRESSION
     Dosage: 1 MG, QD
     Route: 048
     Dates: start: 20120601
  6. QUETIAPINE FUMARATE [Concomitant]
     Indication: DEPRESSION
     Dosage: 1 DF, QD
     Route: 048
  7. TRILEPTAL [Suspect]
     Indication: DEPRESSION
     Dosage: 300 MG, BID
     Route: 048
     Dates: start: 20120305
  8. TRILEPTAL [Suspect]
     Dosage: 300 MG, 1 TABLET AT MORNING AND 1 TABLET AT AFTERNOON
     Route: 048
  9. TRILEPTAL [Suspect]
     Dosage: 600 MG, 1 TABLET AT NIGHT
     Route: 048
     Dates: start: 20120707
  10. TRILEPTAL [Suspect]
     Dosage: 600 MG, 1 TABLET AT MORNING AND 1 TABLET AT NIGHT
     Route: 048
     Dates: start: 20120201

REACTIONS (16)
  - DEPRESSION [None]
  - HEADACHE [None]
  - JAW DISORDER [None]
  - IMPATIENCE [None]
  - GAIT DISTURBANCE [None]
  - DIZZINESS [None]
  - URINARY TRACT DISORDER [None]
  - ABNORMAL BEHAVIOUR [None]
  - CONFUSIONAL STATE [None]
  - CRYING [None]
  - SPEECH DISORDER [None]
  - SOMNOLENCE [None]
  - HEARING IMPAIRED [None]
  - SINUSITIS [None]
  - NASOPHARYNGITIS [None]
  - ASTHENIA [None]
